FAERS Safety Report 8581838-6 (Version None)
Quarter: 2012Q3

REPORT INFORMATION
  Report Type: 
  Country: None (occurrence: None)
  Receive Date: 20120809
  Receipt Date: 20120802
  Transmission Date: 20120928
  Serious: Yes (Hospitalization, Other)
  Sender: FDA-Public Use
  Company Number: JP-UCBSA-060887

PATIENT
  Age: 42 Year
  Sex: Female

DRUGS (15)
  1. METHOTREXATE [Suspect]
     Route: 048
     Dates: start: 20111207, end: 20111221
  2. PREDNISOLONE [Concomitant]
     Dosage: TOTAL DAILY DOSE: 2 MG
     Dates: start: 20120426
  3. LOXOPROFEN SODIUM HYDRATE [Concomitant]
     Dosage: TOTAL DAILY DOSE:120 MG
     Dates: start: 20120130
  4. SENNOSIDE [Concomitant]
     Dates: start: 20120227
  5. METHOTREXATE [Suspect]
     Route: 048
     Dates: start: 20111221, end: 20120106
  6. CERTOLIZUMAB PEGOL [Suspect]
     Route: 058
     Dates: start: 20111206, end: 20120116
  7. METHOTREXATE [Suspect]
     Indication: RHEUMATOID ARTHRITIS
     Route: 048
     Dates: start: 20120201
  8. CERTOLIZUMAB PEGOL [Suspect]
     Indication: RHEUMATOID ARTHRITIS
     Route: 058
     Dates: start: 20120116, end: 20120620
  9. METHOTREXATE [Suspect]
     Route: 048
     Dates: start: 20120118, end: 20120201
  10. PREDNISOLONE [Concomitant]
     Dosage: TOTAL DAILY DOSE:2.5 MG
     Dates: start: 20120316, end: 20120425
  11. METHOTREXATE [Suspect]
     Route: 048
     Dates: start: 20120106, end: 20120118
  12. METOCLOPRAMIDE [Concomitant]
     Dosage: DAILY DOSE : 5 MG
     Dates: start: 20120301
  13. FOLIC ACID [Concomitant]
     Dates: start: 20111209
  14. DIFLUPREDNATE [Concomitant]
     Dosage: PRN QS
     Dates: start: 20111122
  15. LANSOPRAZOLE [Concomitant]
     Dates: start: 20111207

REACTIONS (1)
  - CERVIX CARCINOMA [None]
